FAERS Safety Report 9618409 (Version 2)
Quarter: 2013Q4

REPORT INFORMATION
  Report Type: Spontaneous
  Country: US (occurrence: US)
  Receive Date: 20131014
  Receipt Date: 20131126
  Transmission Date: 20140711
  Serious: No
  Sender: FDA-Public Use
  Company Number: US-ROXANE LABORATORIES, INC.-2013-RO-01682RO

PATIENT
  Age: 57 Year
  Sex: Female

DRUGS (1)
  1. HYDROMORPHONE [Suspect]
     Indication: PAIN

REACTIONS (2)
  - Drug ineffective [Unknown]
  - Product quality issue [Unknown]
